FAERS Safety Report 12759311 (Version 1)
Quarter: 2016Q3

REPORT INFORMATION
  Report Type: Spontaneous
  Country: US (occurrence: US)
  Receive Date: 20160919
  Receipt Date: 20160919
  Transmission Date: 20161109
  Serious: No
  Sender: FDA-Public Use
  Company Number: US-JUBILANT HOLLISTERSTIER LLC-1057441

PATIENT
  Age: 7 Year
  Sex: Female

DRUGS (20)
  1. STANDARDIZED GRASS POLLEN, GRASS MIX 7 [Suspect]
     Active Substance: AGROSTIS GIGANTEA POLLEN\ANTHOXANTHUM ODORATUM POLLEN\DACTYLIS GLOMERATA POLLEN\FESTUCA PRATENSIS POLLEN\LOLIUM PERENNE POLLEN\PHLEUM PRATENSE POLLEN\POA PRATENSIS POLLEN
     Dates: start: 20160229, end: 20160229
  2. MONTELUKAST SODIUM. [Concomitant]
     Active Substance: MONTELUKAST SODIUM
  3. STANDARDIZED CAT PELT [Suspect]
     Active Substance: FELIS CATUS DANDER
     Dates: start: 20160229, end: 20160229
  4. STANDARDIZED BERMUDA GRASS POLLEN [Suspect]
     Active Substance: CYNODON DACTYLON POLLEN
     Dates: start: 20160229, end: 20160229
  5. POLLENS - TREES, OAK MIX [Suspect]
     Active Substance: QUERCUS ALBA POLLEN\QUERCUS RUBRA POLLEN\QUERCUS VIRGINIANA POLLEN
     Dates: start: 20160229, end: 20160229
  6. FLONASE [Concomitant]
     Active Substance: FLUTICASONE PROPIONATE
  7. PROAIR HFA [Concomitant]
     Active Substance: ALBUTEROL SULFATE
  8. STERILE DILUENT FOR ALLERGENIC EXTRACT (ALBUMIN (HUMAN)\PHENOL) [Suspect]
     Active Substance: ALBUMIN HUMAN\PHENOL
     Dates: start: 20160229, end: 20160229
  9. POLLENS - GRASSES, JOHNSON GRASS SORGHUM HALEPENSE [Suspect]
     Active Substance: SORGHUM HALEPENSE POLLEN
     Indication: HYPERSENSITIVITY
     Dates: start: 20160229, end: 20160229
  10. PECAN POLLEN [Suspect]
     Active Substance: CARYA ILLINOINENSIS POLLEN
     Dates: start: 20160229, end: 20160229
  11. RAGWEED MIXTURE [Suspect]
     Active Substance: AMBROSIA ARTEMISIIFOLIA POLLEN\AMBROSIA BIDENTATA POLLEN\AMBROSIA PSILOSTACHYA POLLEN\AMBROSIA TRIFIDA POLLEN
     Dates: start: 20160229, end: 20160229
  12. MIXTURE OF STANDARDIZED MITES [Suspect]
     Active Substance: DERMATOPHAGOIDES FARINAE\DERMATOPHAGOIDES PTERONYSSINUS
     Dates: start: 20160229, end: 20160229
  13. QVAR [Concomitant]
     Active Substance: BECLOMETHASONE DIPROPIONATE
  14. MULTI-VITAMIN [Concomitant]
     Active Substance: .ALPHA.-TOCOPHEROL ACETATE, DL-\ASCORBIC ACID\CYANOCOBALAMIN\FLUORIDE ION\FOLIC ACID\NIACIN\PYRIDOXINE\RIBOFLAVIN\THIAMINE\VITAMIN A\VITAMIN D
  15. POLLENS - WEEDS, MARSHELDER/POVERTY MIX [Suspect]
     Active Substance: CYCLACHAENA XANTHIFOLIA POLLEN\IVA ANNUA POLLEN\IVA AXILLARIS POLLEN
     Dates: start: 20160229, end: 20160229
  16. POLLENS - TREES, MULBERRY MIX [Suspect]
     Active Substance: MORUS ALBA POLLEN\MORUS RUBRA POLLEN
     Dates: start: 20160229, end: 20160229
  17. BAHIA GRASS POLLEN [Suspect]
     Active Substance: PASPALUM NOTATUM POLLEN
     Dates: start: 20160229, end: 20160229
  18. DOCK/SORREL MIXTURE [Suspect]
     Active Substance: RUMEX ACETOSELLA POLLEN\RUMEX CRISPUS POLLEN
     Dates: start: 20160229, end: 20160229
  19. CETIRIZINE [Concomitant]
     Active Substance: CETIRIZINE HYDROCHLORIDE
  20. RUSSIAN THISTLE POLLEN [Suspect]
     Active Substance: SALSOLA KALI POLLEN
     Dates: start: 20160229, end: 20160229

REACTIONS (7)
  - Wheezing [None]
  - Cough [None]
  - Vomiting [None]
  - Vaccination complication [None]
  - Local reaction [None]
  - Eye irritation [None]
  - Anaphylactic reaction [None]
